FAERS Safety Report 6653973-0 (Version None)
Quarter: 2010Q1

REPORT INFORMATION
  Report Type: 
  Country: None (occurrence: None)
  Receive Date: 20100326
  Receipt Date: 20100317
  Transmission Date: 20100710
  Serious: Yes (Hospitalization)
  Sender: FDA-Public Use
  Company Number: US-JNJFOC-20100209791

PATIENT
  Sex: Female
  Weight: 57.61 kg

DRUGS (4)
  1. INVEGA [Suspect]
     Indication: SCHIZOPHRENIA, PARANOID TYPE
     Route: 048
  2. INVEGA [Suspect]
     Route: 048
  3. INVEGA [Suspect]
     Route: 048
  4. INVEGA [Suspect]
     Route: 048

REACTIONS (8)
  - ANGER [None]
  - BREAST CANCER STAGE II [None]
  - COUGH [None]
  - HEADACHE [None]
  - HUNGER [None]
  - SCHIZOPHRENIA, PARANOID TYPE [None]
  - THINKING ABNORMAL [None]
  - WEIGHT INCREASED [None]
